FAERS Safety Report 9213914 (Version 1)
Quarter: 2013Q2

REPORT INFORMATION
  Report Type: Spontaneous
  Country: FR (occurrence: FR)
  Receive Date: 20130405
  Receipt Date: 20130405
  Transmission Date: 20140414
  Serious: Yes (Life-Threatening, Hospitalization)
  Sender: FDA-Public Use
  Company Number: FR-SANOFI-AVENTIS-2013SA033825

PATIENT
  Age: 63 Year
  Sex: Male

DRUGS (8)
  1. PYOSTACINE [Suspect]
     Indication: COUGH
     Route: 048
     Dates: start: 20130222, end: 20130224
  2. LASILIX [Interacting]
     Indication: PRODUCT USED FOR UNKNOWN INDICATION
     Route: 048
     Dates: end: 20130224
  3. PERINDOPRIL [Interacting]
     Indication: PRODUCT USED FOR UNKNOWN INDICATION
     Route: 048
     Dates: end: 20130224
  4. KARDEGIC [Concomitant]
     Route: 048
     Dates: end: 20130224
  5. ALLOPURINOL [Concomitant]
     Route: 048
     Dates: end: 20130224
  6. ADENURIC [Concomitant]
     Route: 048
     Dates: end: 20130224
  7. EPOETIN BETA [Concomitant]
     Dosage: EVERY 15 DAYS
     Route: 058
  8. CARDENSIEL [Concomitant]
     Route: 048
     Dates: end: 20130224

REACTIONS (9)
  - Hypovolaemic shock [Recovered/Resolved]
  - Hypotension [Recovered/Resolved]
  - Drug interaction [Unknown]
  - Renal failure acute [Recovered/Resolved]
  - Diarrhoea [Recovered/Resolved]
  - Vomiting [Recovered/Resolved]
  - Ventricular hyperkinesia [None]
  - Dehydration [None]
  - Gastrointestinal disorder [None]
